FAERS Safety Report 7094591-2 (Version None)
Quarter: 2010Q4

REPORT INFORMATION
  Report Type: 
  Country: None (occurrence: None)
  Receive Date: 20101110
  Receipt Date: 20101105
  Transmission Date: 20110411
  Serious: Yes (Hospitalization, Other)
  Sender: FDA-Public Use
  Company Number: US-ROXANE LABORATORIES, INC.-2010-RO-01467RO

PATIENT
  Sex: Female

DRUGS (1)
  1. LITHIUM CARBONATE [Suspect]
     Indication: BIPOLAR DISORDER

REACTIONS (6)
  - CELLULITIS [None]
  - COMPARTMENT SYNDROME [None]
  - FALL [None]
  - MUSCLE NECROSIS [None]
  - PERONEAL NERVE PALSY [None]
  - PSYCHOGENIC PAIN DISORDER [None]
